FAERS Safety Report 13332803 (Version 1)
Quarter: 2017Q1

REPORT INFORMATION
  Report Type: Spontaneous
  Country: HR (occurrence: HR)
  Receive Date: 20170314
  Receipt Date: 20170314
  Transmission Date: 20170428
  Serious: Yes (Other)
  Sender: FDA-Public Use
  Company Number: HR-ROCHE-1905826

PATIENT
  Age: 47 Year
  Sex: Female

DRUGS (1)
  1. ROACTEMRA [Suspect]
     Active Substance: TOCILIZUMAB
     Indication: RHEUMATOID ARTHRITIS
     Route: 058
     Dates: start: 201610

REACTIONS (4)
  - Leukopenia [Recovering/Resolving]
  - Complement factor C4 decreased [Recovering/Resolving]
  - Complement factor C3 decreased [Recovering/Resolving]
  - Rash [Recovering/Resolving]
